FAERS Safety Report 22237217 (Version 1)
Quarter: 2023Q2

REPORT INFORMATION
  Report Type: Spontaneous
  Country: US (occurrence: None)
  Receive Date: 20230421
  Receipt Date: 20230421
  Transmission Date: 20230722
  Serious: No
  Sender: FDA-Public Use
  Company Number: US-ROCHE-3247481

PATIENT
  Age: 76 Year
  Sex: Female

DRUGS (1)
  1. ESBRIET [Suspect]
     Active Substance: PIRFENIDONE
     Indication: Idiopathic pulmonary fibrosis
     Dosage: 267 MG 3 TIMES DAILY FOR 7 DAYS, THEN 534 MG 3 TIMES DAILY FOR 7 DAYS, THEN 801 MG 3 TIMES DAILY THE
     Route: 048
     Dates: start: 202211

REACTIONS (2)
  - Abdominal discomfort [Unknown]
  - Appetite disorder [Unknown]
